FAERS Safety Report 7203196-1 (Version None)
Quarter: 2010Q4

REPORT INFORMATION
  Report Type: 
  Country: None (occurrence: None)
  Receive Date: 20101230
  Receipt Date: 20101220
  Transmission Date: 20110411
  Serious: Yes (Hospitalization)
  Sender: FDA-Public Use
  Company Number: US-BIOGENIDEC-2006BI000211

PATIENT
  Age: 43 Year
  Sex: Male
  Weight: 74 kg

DRUGS (4)
  1. AVONEX [Suspect]
     Indication: MULTIPLE SCLEROSIS
     Route: 030
     Dates: start: 20030607, end: 20080324
  2. AVONEX [Suspect]
     Route: 030
     Dates: start: 20020101, end: 20030101
  3. AVONEX [Suspect]
     Route: 030
  4. AMBIEN [Concomitant]
     Indication: INSOMNIA
     Dates: start: 19970101

REACTIONS (8)
  - ENCEPHALITIS [None]
  - INJECTION SITE ABSCESS [None]
  - MULTIPLE SCLEROSIS [None]
  - MULTIPLE SCLEROSIS RELAPSE [None]
  - MUSCLE SPASMS [None]
  - OEDEMA PERIPHERAL [None]
  - PAIN IN EXTREMITY [None]
  - WEIGHT DECREASED [None]
